FAERS Safety Report 6810673-1 (Version None)
Quarter: 2010Q2

REPORT INFORMATION
  Report Type: 
  Country: None (occurrence: None)
  Receive Date: 20100629
  Receipt Date: 20100629
  Transmission Date: 20101027
  Serious: Yes (Other)
  Sender: FDA-Public Use
  Company Number: None

PATIENT
  Age: 82 Year
  Sex: Female
  Weight: 68.0396 kg

DRUGS (1)
  1. CIPROFLOXIN  250MG NORTHSTAR [Suspect]
     Indication: CYSTITIS
     Dosage: 250MG TWICE DAILY PO
     Route: 048
     Dates: start: 20100611, end: 20100611

REACTIONS (3)
  - HYPOAESTHESIA [None]
  - RASH [None]
  - TENDONITIS [None]
